FAERS Safety Report 8774336 (Version 1)
Quarter: 2012Q4

REPORT INFORMATION
  Report Type: 
  Country: DE (occurrence: DE)
  Receive Date: 20120907
  Receipt Date: 20120907
  Transmission Date: 20130627
  Serious: Yes (Hospitalization)
  Sender: FDA-Public Use
  Company Number: DE-ELI_LILLY_AND_COMPANY-DE201208009078

PATIENT
  Sex: Male

DRUGS (2)
  1. HUMALOG LISPRO [Suspect]
     Indication: DIABETES MELLITUS
     Dosage: 16 u, unknown
     Route: 058
  2. HUMALOG LISPRO [Suspect]
     Dosage: 38.4 u, unknown
     Route: 058
     Dates: start: 20120830

REACTIONS (3)
  - Hospitalisation [Unknown]
  - Incorrect dose administered [Recovered/Resolved]
  - Blood glucose decreased [None]
